FAERS Safety Report 14758162 (Version 3)
Quarter: 2018Q3

REPORT INFORMATION
  Report Type: Report from Study
  Country: None (occurrence: US)
  Receive Date: 20180413
  Receipt Date: 20180731
  Transmission Date: 20181010
  Serious: Yes (Other)
  Sender: FDA-Public Use
  Company Number: US-ABBVIE-17K-163-2139150-00

PATIENT
  Sex: Female

DRUGS (1)
  1. HUMIRA [Suspect]
     Active Substance: ADALIMUMAB
     Indication: RHEUMATOID ARTHRITIS
     Route: 058
     Dates: start: 20171010

REACTIONS (11)
  - Gait disturbance [Recovering/Resolving]
  - Stress [Unknown]
  - Hypertension [Unknown]
  - Ovarian mass [Recovered/Resolved]
  - Anxiety [Unknown]
  - Hypersensitivity [Unknown]
  - Headache [Unknown]
  - Nasopharyngitis [Unknown]
  - Extra dose administered [Unknown]
  - Rheumatoid arthritis [Not Recovered/Not Resolved]
  - Postoperative wound infection [Recovered/Resolved]

NARRATIVE: CASE EVENT DATE: 2017
